FAERS Safety Report 5169217-5 (Version None)
Quarter: 2006Q4

REPORT INFORMATION
  Report Type: 
  Country: None (occurrence: None)
  Receive Date: 20061204
  Receipt Date: 20061124
  Transmission Date: 20070319
  Serious: Yes (Other)
  Sender: FDA-Public Use
  Company Number: 2006126586

PATIENT
  Age: 56 Year
  Sex: Female
  Weight: 94.3482 kg

DRUGS (22)
  1. CELEBREX [Suspect]
     Indication: ARTHRITIS
     Dosage: 400 MG (200 MG, 2 IN 1 D)
  2. DILANTIN [Suspect]
     Indication: CONVULSION
  3. TYLENOL PM (DIPHENHYDRAMINE, PARACETAMOL) [Suspect]
  4. TYLENOL [Suspect]
  5. LAMICTAL [Suspect]
     Dates: start: 20050101
  6. LISINOPRIL [Concomitant]
  7. ZYRTEC [Concomitant]
  8. CALCIUM (CALCIUM) [Concomitant]
  9. MULTIVITAMIN [Concomitant]
  10. ATIVAN [Concomitant]
  11. ASPIRIN [Concomitant]
  12. FOSAMAX [Concomitant]
  13. CELEXA [Concomitant]
  14. CLONAZEPAM [Concomitant]
  15. EVENING PRIMROSE OIL (EVENING PRIMROSE OIL) [Concomitant]
  16. MEVACOR [Concomitant]
  17. VITAMIN E [Concomitant]
  18. GARLIC (GARLIC) [Concomitant]
  19. CALCIUM (CALCIUM) [Concomitant]
  20. FISH OIL (FISH OIL) [Concomitant]
  21. TYLENOL PM (DIPHENHYDRAMINE, PARACETAMOL) [Concomitant]
  22. COD LIVER OIL FORTIFIED TAB [Concomitant]

REACTIONS (8)
  - ARTHRITIS [None]
  - DRUG EFFECT DECREASED [None]
  - DYSURIA [None]
  - ILL-DEFINED DISORDER [None]
  - PETIT MAL EPILEPSY [None]
  - ROTATOR CUFF REPAIR [None]
  - STRESS [None]
  - TREATMENT NONCOMPLIANCE [None]
